FAERS Safety Report 7443076-X (Version None)
Quarter: 2011Q2

REPORT INFORMATION
  Report Type: 
  Country: None (occurrence: None)
  Receive Date: 20110428
  Receipt Date: 20110415
  Transmission Date: 20111010
  Serious: Yes (Hospitalization, Other)
  Sender: FDA-Public Use
  Company Number: US-PURDUE-USA-2010-0060867

PATIENT
  Sex: Female

DRUGS (5)
  1. OXYCONTIN (NDA 22-272) [Interacting]
     Indication: MUSCLE DISORDER
     Dosage: 20 MG, BID
     Route: 048
     Dates: start: 20101201
  2. COUMADIN [Interacting]
     Indication: DEEP VEIN THROMBOSIS
  3. COUMADIN [Interacting]
     Indication: COMPLEX REGIONAL PAIN SYNDROME
     Dosage: UNK
     Route: 048
  4. OXYCONTIN (NDA 22-272) [Suspect]
     Indication: NERVOUS SYSTEM DISORDER
     Dosage: 80 MG, BID
     Route: 048
     Dates: start: 20101201
  5. OXYCONTIN (NDA 22-272) [Interacting]
     Indication: COMPLEX REGIONAL PAIN SYNDROME

REACTIONS (21)
  - PAIN [None]
  - LIMB INJURY [None]
  - DRUG INTERACTION [None]
  - HAEMORRHAGIC DIATHESIS [None]
  - GENERAL PHYSICAL HEALTH DETERIORATION [None]
  - NAUSEA [None]
  - FALL [None]
  - INTERNATIONAL NORMALISED RATIO ABNORMAL [None]
  - CHILLS [None]
  - VOMITING [None]
  - HEADACHE [None]
  - DYSPNOEA [None]
  - DRUG WITHDRAWAL SYNDROME [None]
  - VENOUS HAEMORRHAGE [None]
  - VARICOSE VEIN [None]
  - DIZZINESS [None]
  - ALOPECIA [None]
  - DRUG INEFFECTIVE [None]
  - DRUG EFFECT DECREASED [None]
  - PRODUCT SIZE ISSUE [None]
  - HYPERHIDROSIS [None]
